FAERS Safety Report 5656474-1 (Version None)
Quarter: 2008Q1

REPORT INFORMATION
  Report Type: 
  Country: None (occurrence: None)
  Receive Date: 20080309
  Receipt Date: 20080115
  Transmission Date: 20080703
  Serious: No
  Sender: FDA-Public Use
  Company Number: US-BAYER-200810269BCC

PATIENT
  Age: 38 Year
  Sex: Female
  Weight: 61 kg

DRUGS (5)
  1. ALEVE COLD AND SINUS [Suspect]
     Indication: SINUS CONGESTION
     Route: 048
     Dates: start: 20080114, end: 20080114
  2. ALEVE COLD AND SINUS [Suspect]
     Route: 048
     Dates: start: 20080115
  3. ASACOL [Concomitant]
  4. MINOCYCLINE HCL [Concomitant]
  5. CENTRUM [Concomitant]

REACTIONS (2)
  - HEADACHE [None]
  - RHINORRHOEA [None]
